FAERS Safety Report 5801495-9 (Version None)
Quarter: 2008Q2

REPORT INFORMATION
  Report Type: 
  Country: None (occurrence: None)
  Receive Date: 20080626
  Receipt Date: 20071012
  Transmission Date: 20081010
  Serious: Yes (Other)
  Sender: FDA-Public Use
  Company Number: 524971

PATIENT
  Sex: Female

DRUGS (2)
  1. XELODA [Suspect]
     Indication: BREAST CANCER METASTATIC
  2. ARIMIDEX [Suspect]
     Indication: BREAST CANCER METASTATIC

REACTIONS (1)
  - METASTATIC NEOPLASM [None]
